FAERS Safety Report 9666422 (Version 1)
Quarter: 2013Q4

REPORT INFORMATION
  Report Type: Spontaneous
  Country: FR (occurrence: FR)
  Receive Date: 20131104
  Receipt Date: 20131104
  Transmission Date: 20140711
  Serious: Yes (Hospitalization, Other)
  Sender: FDA-Public Use
  Company Number: FR-PFIZER INC-2013308138

PATIENT
  Age: 24 Year
  Sex: Female
  Weight: 93 kg

DRUGS (2)
  1. MINIDRIL [Suspect]
     Route: 048
  2. ADEPAL [Suspect]

REACTIONS (2)
  - Venous thrombosis [Unknown]
  - Postpartum venous thrombosis [Unknown]
